FAERS Safety Report 26186319 (Version 1)
Quarter: 2025Q4

REPORT INFORMATION
  Report Type: Spontaneous
  Country: US (occurrence: US)
  Receive Date: 20251222
  Receipt Date: 20251222
  Transmission Date: 20260118
  Serious: Yes (Other)
  Sender: MYLAN
  Company Number: US-MYLANLABS-2025M1108110

PATIENT
  Sex: Male

DRUGS (20)
  1. CYCLOSPORINE [Suspect]
     Active Substance: CYCLOSPORINE
     Indication: Congenital retinoblastoma
     Dosage: UNK, CYCLE (6 CYCLES)
  2. CYCLOSPORINE [Suspect]
     Active Substance: CYCLOSPORINE
     Dosage: UNK, CYCLE (6 CYCLES)
     Route: 065
  3. CYCLOSPORINE [Suspect]
     Active Substance: CYCLOSPORINE
     Dosage: UNK, CYCLE (6 CYCLES)
     Route: 065
  4. CYCLOSPORINE [Suspect]
     Active Substance: CYCLOSPORINE
     Dosage: UNK, CYCLE (6 CYCLES)
  5. MELPHALAN HYDROCHLORIDE [Suspect]
     Active Substance: MELPHALAN HYDROCHLORIDE
     Indication: Congenital retinoblastoma
     Dosage: UNK, CYCLE (5 CYCLES)
  6. MELPHALAN HYDROCHLORIDE [Suspect]
     Active Substance: MELPHALAN HYDROCHLORIDE
     Dosage: UNK, CYCLE (5 CYCLES)
     Route: 013
  7. MELPHALAN HYDROCHLORIDE [Suspect]
     Active Substance: MELPHALAN HYDROCHLORIDE
     Dosage: UNK, CYCLE (5 CYCLES)
     Route: 013
  8. MELPHALAN HYDROCHLORIDE [Suspect]
     Active Substance: MELPHALAN HYDROCHLORIDE
     Dosage: UNK, CYCLE (5 CYCLES)
  9. VINCRISTINE [Concomitant]
     Active Substance: VINCRISTINE
     Indication: Congenital retinoblastoma
     Dosage: UNK, CYCLE (6 CYCLES)
  10. VINCRISTINE [Concomitant]
     Active Substance: VINCRISTINE
     Dosage: UNK, CYCLE (6 CYCLES)
     Route: 065
  11. VINCRISTINE [Concomitant]
     Active Substance: VINCRISTINE
     Dosage: UNK, CYCLE (6 CYCLES)
     Route: 065
  12. VINCRISTINE [Concomitant]
     Active Substance: VINCRISTINE
     Dosage: UNK, CYCLE (6 CYCLES)
  13. ETOPOSIDE [Concomitant]
     Active Substance: ETOPOSIDE
     Indication: Congenital retinoblastoma
     Dosage: UNK, CYCLE (6 CYCLES)
  14. ETOPOSIDE [Concomitant]
     Active Substance: ETOPOSIDE
     Dosage: UNK, CYCLE (6 CYCLES)
     Route: 065
  15. ETOPOSIDE [Concomitant]
     Active Substance: ETOPOSIDE
     Dosage: UNK, CYCLE (6 CYCLES)
     Route: 065
  16. ETOPOSIDE [Concomitant]
     Active Substance: ETOPOSIDE
     Dosage: UNK, CYCLE (6 CYCLES)
  17. CARBOPLATIN [Concomitant]
     Active Substance: CARBOPLATIN
     Indication: Congenital retinoblastoma
     Dosage: UNK, CYCLE (6 CYCLES)
  18. CARBOPLATIN [Concomitant]
     Active Substance: CARBOPLATIN
     Dosage: UNK, CYCLE (6 CYCLES)
     Route: 065
  19. CARBOPLATIN [Concomitant]
     Active Substance: CARBOPLATIN
     Dosage: UNK, CYCLE (6 CYCLES)
     Route: 065
  20. CARBOPLATIN [Concomitant]
     Active Substance: CARBOPLATIN
     Dosage: UNK, CYCLE (6 CYCLES)

REACTIONS (3)
  - Drug ineffective [Unknown]
  - Disease progression [Unknown]
  - Product prescribing issue [Unknown]
